FAERS Safety Report 14731307 (Version 2)
Quarter: 2018Q2

REPORT INFORMATION
  Report Type: Spontaneous
  Country: JP (occurrence: JP)
  Receive Date: 20180407
  Receipt Date: 20180528
  Transmission Date: 20180711
  Serious: No
  Sender: FDA-Public Use
  Company Number: JP-ROCHE-2103480

PATIENT
  Age: 63 Year
  Sex: Male
  Weight: 63 kg

DRUGS (5)
  1. CYCLOPHOSPHAMIDE. [Concomitant]
     Active Substance: CYCLOPHOSPHAMIDE
  2. INSULIN [Concomitant]
     Active Substance: INSULIN NOS
  3. VINCRISTINE [Concomitant]
     Active Substance: VINCRISTINE
  4. RITUXAN [Suspect]
     Active Substance: RITUXIMAB
     Indication: NON-HODGKIN^S LYMPHOMA
     Route: 042
     Dates: start: 20170110
  5. DOXORUBICIN [Concomitant]
     Active Substance: DOXORUBICIN

REACTIONS (1)
  - Metabolic disorder [Recovering/Resolving]

NARRATIVE: CASE EVENT DATE: 201803
